FAERS Safety Report 25670330 (Version 2)
Quarter: 2025Q3

REPORT INFORMATION
  Report Type: Report from Study
  Country: GB (occurrence: GB)
  Receive Date: 20250812
  Receipt Date: 20250814
  Transmission Date: 20251021
  Serious: Yes (Other)
  Sender: ELI LILLY AND COMPANY
  Company Number: GB-ELI_LILLY_AND_COMPANY-GB202508003847

PATIENT
  Age: 43 Year
  Sex: Male

DRUGS (2)
  1. OMVOH [Suspect]
     Active Substance: MIRIKIZUMAB-MRKZ
     Indication: Colitis ulcerative
     Route: 058
     Dates: start: 20250603, end: 20250801
  2. OMVOH [Suspect]
     Active Substance: MIRIKIZUMAB-MRKZ
     Indication: Colitis ulcerative
     Route: 058
     Dates: start: 20250603, end: 20250801

REACTIONS (8)
  - Diarrhoea haemorrhagic [Recovering/Resolving]
  - Colitis ulcerative [Recovering/Resolving]
  - Illness [Recovered/Resolved]
  - Feeding disorder [Recovering/Resolving]
  - Vomiting [Recovered/Resolved]
  - Cough [Unknown]
  - Headache [Unknown]
  - Drug ineffective [Unknown]

NARRATIVE: CASE EVENT DATE: 20250802
